FAERS Safety Report 18808838 (Version 2)
Quarter: 2021Q1

REPORT INFORMATION
  Report Type: Spontaneous
  Country: US (occurrence: US)
  Receive Date: 20210129
  Receipt Date: 20210308
  Transmission Date: 20210419
  Serious: Yes (Other)
  Sender: FDA-Public Use
  Company Number: US-PFIZER INC-2020334477

PATIENT
  Age: 82 Year
  Sex: Male

DRUGS (6)
  1. RETACRIT [Suspect]
     Active Substance: EPOETIN ALFA-EPBX
     Indication: HAEMOGLOBIN INCREASED
     Dosage: UNK, WEEKLY (20,000 TO 40,000 UNITS ONCE PER WEEK)
     Route: 058
  2. JAKAFI [Concomitant]
     Active Substance: RUXOLITINIB
     Indication: PRIMARY MYELOFIBROSIS
     Dosage: UNK
  3. RETACRIT [Suspect]
     Active Substance: EPOETIN ALFA-EPBX
     Indication: ANAEMIA
  4. RETACRIT [Suspect]
     Active Substance: EPOETIN ALFA-EPBX
     Indication: MYELOFIBROSIS
     Dosage: 10000 IU
  5. RETACRIT [Suspect]
     Active Substance: EPOETIN ALFA-EPBX
     Indication: MYELODYSPLASTIC SYNDROME
  6. JAKAFI [Concomitant]
     Active Substance: RUXOLITINIB
     Indication: MYELODYSPLASTIC SYNDROME

REACTIONS (1)
  - Renal impairment [Not Recovered/Not Resolved]
